FAERS Safety Report 6706931-1 (Version None)
Quarter: 2010Q2

REPORT INFORMATION
  Report Type: 
  Country: None (occurrence: None)
  Receive Date: 20100503
  Receipt Date: 20100421
  Transmission Date: 20101027
  Serious: Yes (Hospitalization)
  Sender: FDA-Public Use
  Company Number: JP-PFIZER INC-2010053695

PATIENT
  Age: 40 Year
  Sex: Female

DRUGS (7)
  1. ADRIACIN [Suspect]
     Indication: BREAST CANCER
     Dosage: 73 MG, UNK
     Dates: start: 20100217
  2. PEGFILGRASTIM [Suspect]
     Indication: NEUTROPENIA
     Dosage: 6 MG, UNK
     Route: 058
     Dates: start: 20100218
  3. ENDOXAN [Suspect]
     Indication: BREAST CANCER
     Dosage: 730 MG, UNK
     Dates: start: 20100217
  4. TAXOTERE [Suspect]
     Indication: BREAST CANCER
     Dosage: 109 MG, UNK
     Dates: start: 20100217
  5. LOXONIN [Concomitant]
     Dosage: 100 MG, X 3/DAY
     Route: 048
     Dates: start: 20100318
  6. TAKEPRON [Concomitant]
     Dosage: 15 MG,X 1/DAY
     Route: 048
     Dates: start: 20100221
  7. GLYCYRON [Concomitant]
     Dosage: 6 DFX 1/DAY
     Route: 048
     Dates: start: 20100407

REACTIONS (1)
  - CYSTITIS [None]
